FAERS Safety Report 23652148 (Version 3)
Quarter: 2025Q4

REPORT INFORMATION
  Report Type: Spontaneous
  Country: EU (occurrence: EU)
  Receive Date: 20240320
  Receipt Date: 20251016
  Transmission Date: 20260118
  Serious: Yes (Other)
  Sender: ALKEM
  Company Number: None

PATIENT
  Age: 57 Year
  Sex: Male

DRUGS (8)
  1. EVEROLIMUS [Suspect]
     Active Substance: EVEROLIMUS
     Indication: Hodgkin^s disease
     Dosage: 15 MILLIGRAM, QD
     Route: 048
     Dates: start: 2022
  2. ADCETRIS [Suspect]
     Active Substance: BRENTUXIMAB VEDOTIN
     Indication: Hodgkin^s disease
     Dosage: UNK
     Route: 065
  3. ADCETRIS [Suspect]
     Active Substance: BRENTUXIMAB VEDOTIN
     Dosage: UNK (RE CHALLENGE DOSE)
     Route: 065
  4. PEMBROLIZUMAB [Suspect]
     Active Substance: PEMBROLIZUMAB
     Indication: Hodgkin^s disease nodular sclerosis recurrent
     Dosage: UNK
     Route: 065
     Dates: start: 202011
  5. DEXAMETHASONE [Concomitant]
     Active Substance: DEXAMETHASONE
     Indication: Hodgkin^s disease
     Dosage: 0.5 MILLIGRAM, QD
     Route: 048
     Dates: start: 202208
  6. ETORICOXIB [Concomitant]
     Active Substance: ETORICOXIB
     Indication: Hodgkin^s disease
     Dosage: 60 MILLIGRAM, QD
     Route: 048
     Dates: start: 202208
  7. PIOGLITAZONE [Concomitant]
     Active Substance: PIOGLITAZONE
     Indication: Hodgkin^s disease
     Dosage: 45 MILLIGRAM, QD
     Route: 048
     Dates: start: 202208
  8. TREOSULFAN [Concomitant]
     Active Substance: TREOSULFAN
     Indication: Hodgkin^s disease
     Dosage: 250 MILLIGRAM, QD, LOW-DOSE
     Route: 048
     Dates: start: 202208

REACTIONS (7)
  - Malignant neoplasm progression [Unknown]
  - Hodgkin^s disease recurrent [Unknown]
  - Pneumonitis [Recovered/Resolved]
  - Off label use [Unknown]
  - Drug ineffective [Unknown]
  - Lung infiltration [Recovered/Resolved]
  - Drug resistance [Unknown]

NARRATIVE: CASE EVENT DATE: 20220101
